FAERS Safety Report 4473241-5 (Version None)
Quarter: 2004Q4

REPORT INFORMATION
  Report Type: 
  Country: None (occurrence: None)
  Receive Date: 20041013
  Receipt Date: 20040909
  Transmission Date: 20050328
  Serious: Yes (Other)
  Sender: FDA-Public Use
  Company Number: PHBS2004JP12024

PATIENT
  Age: 48 Year
  Sex: Female

DRUGS (11)
  1. DIOVAN [Suspect]
     Dosage: 160 MG/DAY
     Route: 048
  2. CONIEL [Concomitant]
     Dosage: 40 MG, UNK
     Route: 048
  3. DILTIAZEM HYDROCHLORIDE [Concomitant]
     Dosage: 100 MG, UNK
     Route: 048
  4. CARDENALIN [Concomitant]
     Dosage: 1 MG, UNK
     Route: 048
  5. ALTAT [Concomitant]
     Dosage: 75 MG, UNK
     Route: 048
  6. BENZALIN [Concomitant]
     Dosage: 5 MG, UNK
     Route: 048
  7. SEVELAMER HYDROCHLORIDE [Concomitant]
     Dosage: 1.5 G, UNK
     Route: 048
  8. TANKARU [Concomitant]
     Dosage: 3 G, UNK
     Route: 048
  9. STARSIS [Concomitant]
     Dosage: 180 MG, UNK
     Route: 048
  10. KINEDAK [Concomitant]
     Dosage: 150 MG, UNK
     Route: 048
  11. SENNOSIDE A+B [Concomitant]
     Dosage: 24 MG, UNK
     Route: 048

REACTIONS (1)
  - ANAPHYLACTIC SHOCK [None]
